FAERS Safety Report 5771851-6 (Version None)
Quarter: 2008Q2

REPORT INFORMATION
  Report Type: 
  Country: None (occurrence: None)
  Receive Date: 20080613
  Receipt Date: 20080603
  Transmission Date: 20081010
  Serious: Yes (Other)
  Sender: FDA-Public Use
  Company Number: B0360963A

PATIENT
  Age: 34 Year
  Sex: Male

DRUGS (3)
  1. PAROXETINE HCL [Suspect]
     Route: 065
     Dates: start: 19981023
  2. EDRONAX [Concomitant]
     Dosage: 4MG TWICE PER DAY
     Dates: start: 20010501
  3. DIAZEPAM [Concomitant]
     Dates: start: 20070503

REACTIONS (11)
  - ABNORMAL DREAMS [None]
  - ANXIETY [None]
  - DEPRESSION [None]
  - DRUG DEPENDENCE [None]
  - DRUG WITHDRAWAL SYNDROME [None]
  - HYPERHIDROSIS [None]
  - IRRITABILITY [None]
  - MOOD SWINGS [None]
  - MUSCLE SPASMS [None]
  - NIGHTMARE [None]
  - SEDATION [None]
